APPROVED DRUG PRODUCT: TAMOXIFEN CITRATE
Active Ingredient: TAMOXIFEN CITRATE
Strength: EQ 20MG BASE
Dosage Form/Route: TABLET;ORAL
Application: A206694 | Product #002 | TE Code: AB
Applicant: ZYDUS PHARMACEUTICALS USA INC
Approved: Oct 27, 2017 | RLD: No | RS: No | Type: RX